FAERS Safety Report 5468323-5 (Version None)
Quarter: 2007Q3

REPORT INFORMATION
  Report Type: 
  Country: None (occurrence: None)
  Receive Date: 20070926
  Receipt Date: 20070920
  Transmission Date: 20080115
  Serious: Yes (Life-Threatening, Other)
  Sender: FDA-Public Use
  Company Number: A0678909A

PATIENT
  Age: 69 Year
  Sex: Male
  Weight: 69.1 kg

DRUGS (6)
  1. AVODART [Suspect]
     Indication: BENIGN PROSTATIC HYPERPLASIA
     Route: 048
     Dates: start: 20070810
  2. DIOVAN [Concomitant]
  3. METOPROLOL [Concomitant]
  4. PLAVIX [Concomitant]
  5. LEVOTHROID [Concomitant]
  6. LOVASTATIN [Concomitant]

REACTIONS (1)
  - HYPOTENSION [None]
